FAERS Safety Report 20961751 (Version 1)
Quarter: 2022Q2

REPORT INFORMATION
  Report Type: Spontaneous
  Country: US (occurrence: None)
  Receive Date: 20220614
  Receipt Date: 20220614
  Transmission Date: 20220721
  Serious: No
  Sender: FDA-Public Use
  Company Number: None

PATIENT
  Age: 56 Year
  Sex: Female
  Weight: 63 kg

DRUGS (3)
  1. PAXLOVID [Suspect]
     Active Substance: NIRMATRELVIR\RITONAVIR
     Indication: SARS-CoV-2 test positive
     Dates: start: 20220604, end: 20220608
  2. ESCITALOPRAM [Concomitant]
     Active Substance: ESCITALOPRAM OXALATE
  3. VITAMINS [Concomitant]
     Active Substance: VITAMINS

REACTIONS (14)
  - COVID-19 [None]
  - SARS-CoV-2 test positive [None]
  - Pyrexia [None]
  - Rhinorrhoea [None]
  - Fatigue [None]
  - Rash pruritic [None]
  - Nausea [None]
  - Hyperhidrosis [None]
  - Dizziness [None]
  - Anxiety [None]
  - Paraesthesia [None]
  - Pain [None]
  - Dysgeusia [None]
  - Dizziness [None]

NARRATIVE: CASE EVENT DATE: 20220613
